FAERS Safety Report 21792634 (Version 1)
Quarter: 2022Q4

REPORT INFORMATION
  Report Type: Spontaneous
  Country: TN (occurrence: TN)
  Receive Date: 20221229
  Receipt Date: 20221229
  Transmission Date: 20230112
  Serious: Yes (Other)
  Sender: FDA-Public Use
  Company Number: TN-SUN PHARMACEUTICAL INDUSTRIES LTD-2022R1-370920

PATIENT
  Age: 57 Year
  Sex: Female

DRUGS (2)
  1. LITHIUM [Suspect]
     Active Substance: LITHIUM
     Indication: Bipolar disorder
     Dosage: UNK
     Route: 065
     Dates: end: 202012
  2. HALDOL [Suspect]
     Active Substance: HALOPERIDOL
     Indication: Mania
     Dosage: UNK (25MG)
     Route: 065

REACTIONS (4)
  - Toxicity to various agents [Unknown]
  - Neuroleptic malignant syndrome [Recovering/Resolving]
  - Parkinsonism [Recovering/Resolving]
  - Renal failure [Recovering/Resolving]
